FAERS Safety Report 9022042 (Version 1)
Quarter: 2013Q1

REPORT INFORMATION
  Report Type: Spontaneous
  Country: FR (occurrence: FR)
  Receive Date: 20130118
  Receipt Date: 20130118
  Transmission Date: 20140127
  Serious: Yes (Other)
  Sender: FDA-Public Use
  Company Number: FR-ASTRAZENECA-2012SE11758

PATIENT
  Age: 41 Year
  Sex: Female

DRUGS (2)
  1. XEROQUEL [Suspect]
     Indication: AFFECTIVE DISORDER
     Route: 048
  2. DEROXAT [Concomitant]

REACTIONS (3)
  - Exposure during pregnancy [Recovered/Resolved]
  - Abortion spontaneous [Recovered/Resolved]
  - Drug prescribing error [Unknown]
